FAERS Safety Report 17910583 (Version 2)
Quarter: 2020Q3

REPORT INFORMATION
  Report Type: Spontaneous
  Country: US (occurrence: US)
  Receive Date: 20200618
  Receipt Date: 20200716
  Transmission Date: 20201103
  Serious: No
  Sender: FDA-Public Use
  Company Number: US-HTU-2020US020733

PATIENT
  Sex: Male

DRUGS (2)
  1. VALCHLOR [Suspect]
     Active Substance: MECHLORETHAMINE
     Indication: CUTANEOUS T-CELL LYMPHOMA
     Dosage: UNK, QD
     Route: 061
     Dates: start: 20191120, end: 2020
  2. CLOBETASOL [Concomitant]
     Active Substance: CLOBETASOL
     Indication: CUTANEOUS T-CELL LYMPHOMA

REACTIONS (8)
  - Application site exfoliation [Recovering/Resolving]
  - Drug ineffective [Not Recovered/Not Resolved]
  - Application site scab [Recovering/Resolving]
  - Application site infection [Recovering/Resolving]
  - Product storage error [Recovered/Resolved]
  - Condition aggravated [Recovering/Resolving]
  - Intentional product misuse [Recovered/Resolved]
  - Application site discolouration [Recovering/Resolving]
